FAERS Safety Report 16144017 (Version 1)
Quarter: 2019Q2

REPORT INFORMATION
  Report Type: Report from Study
  Country: US (occurrence: US)
  Receive Date: 20190401
  Receipt Date: 20190401
  Transmission Date: 20190711
  Serious: Yes (Other)
  Sender: FDA-Public Use
  Company Number: PHEH2019US014127

PATIENT
  Sex: Male

DRUGS (1)
  1. ILARIS [Suspect]
     Active Substance: CANAKINUMAB
     Indication: JUVENILE IDIOPATHIC ARTHRITIS
     Dosage: 150 MG, Q4W
     Route: 058

REACTIONS (3)
  - Rash [Unknown]
  - Body temperature increased [Unknown]
  - Juvenile idiopathic arthritis [Unknown]
